FAERS Safety Report 5321175-6 (Version None)
Quarter: 2007Q2

REPORT INFORMATION
  Report Type: 
  Country: None (occurrence: None)
  Receive Date: 20070510
  Receipt Date: 20070504
  Transmission Date: 20071010
  Serious: Yes (Hospitalization)
  Sender: FDA-Public Use
  Company Number: US-BAYER-200611579BWH

PATIENT
  Age: 61 Year
  Sex: Male
  Weight: 69 kg

DRUGS (5)
  1. SORAFENIB [Suspect]
     Indication: METASTATIC RENAL CELL CARCINOMA
     Dosage: TOTAL DAILY DOSE: 800 MG  UNIT DOSE: 200 MG
     Route: 048
     Dates: start: 20051215, end: 20060209
  2. ZOMETA [Concomitant]
     Indication: HYPERCALCAEMIA
     Route: 042
     Dates: start: 20051110
  3. FERROUS SULFATE TAB [Concomitant]
     Indication: ANAEMIA
     Route: 048
     Dates: start: 20051215
  4. MEGACE [Concomitant]
     Indication: ANOREXIA
     Route: 048
     Dates: start: 20051110
  5. LOTREL [Concomitant]
     Indication: HYPERTENSION
     Route: 048
     Dates: start: 20050112, end: 20060214

REACTIONS (4)
  - BLOOD PRESSURE INCREASED [None]
  - FATIGUE [None]
  - LABORATORY TEST ABNORMAL [None]
  - RENAL FAILURE ACUTE [None]
